FAERS Safety Report 4654447-9 (Version None)
Quarter: 2005Q2

REPORT INFORMATION
  Report Type: 
  Country: None (occurrence: None)
  Receive Date: 20050506
  Receipt Date: 20050428
  Transmission Date: 20051028
  Serious: Yes (Hospitalization)
  Sender: FDA-Public Use
  Company Number: US-BOEHRINGER INGELHEIM PHARMACEUTICALS, INC.-2005-BP-07161BP

PATIENT
  Sex: Female

DRUGS (2)
  1. COMBIVENT [Suspect]
     Indication: CHRONIC OBSTRUCTIVE PULMONARY DISEASE
     Route: 055
     Dates: start: 20040101
  2. COMBIVENT [Suspect]
     Indication: ASTHMA

REACTIONS (3)
  - COLONIC PERFORATION POSTOPERATIVE [None]
  - LARGE INTESTINE PERFORATION [None]
  - PROCEDURAL COMPLICATION [None]
